FAERS Safety Report 11390772 (Version 1)
Quarter: 2015Q3

REPORT INFORMATION
  Report Type: Spontaneous
  Country: NL (occurrence: NL)
  Receive Date: 20150818
  Receipt Date: 20150818
  Transmission Date: 20151125
  Serious: Yes (Life-Threatening)
  Sender: FDA-Public Use
  Company Number: PHHY2015NL098698

PATIENT
  Sex: Male
  Weight: 55 kg

DRUGS (1)
  1. LEPONEX [Suspect]
     Active Substance: CLOZAPINE
     Indication: PRODUCT USED FOR UNKNOWN INDICATION
     Dosage: 25 MG, (50-200 MG)
     Route: 065

REACTIONS (4)
  - Respiratory disorder [Unknown]
  - Fatigue [Unknown]
  - Psychotic disorder [Unknown]
  - Fear of death [Unknown]
